APPROVED DRUG PRODUCT: CALCIPOTRIENE
Active Ingredient: CALCIPOTRIENE
Strength: 0.005%
Dosage Form/Route: CREAM;TOPICAL
Application: A200935 | Product #001
Applicant: CHARTWELL RX SCIENCES LLC
Approved: May 30, 2012 | RLD: No | RS: No | Type: DISCN